FAERS Safety Report 4645606-X (Version None)
Quarter: 2005Q2

REPORT INFORMATION
  Report Type: 
  Country: None (occurrence: None)
  Receive Date: 20050331
  Receipt Date: 20050111
  Transmission Date: 20051028
  Serious: Yes (Hospitalization)
  Sender: FDA-Public Use
  Company Number: 05P-163-0286287-00

PATIENT
  Age: 78 Year
  Sex: Female

DRUGS (5)
  1. HUMIRA [Suspect]
     Indication: RHEUMATOID ARTHRITIS
     Dosage: 40 MG, 1 IN 2 WK, SUBCUTANEOUS
     Route: 058
     Dates: start: 20040801
  2. METHOTREXATE [Suspect]
     Indication: RHEUMATOID ARTHRITIS
     Dosage: 1 TABLET, 3 IN 1 WK, ORAL
     Route: 048
     Dates: start: 20040801, end: 20050105
  3. LEVOFLOXACIN [Suspect]
     Dosage: 500 MG. 1 IN 1 D, PER ORAL
     Route: 048
     Dates: start: 20050105, end: 20050105
  4. RALOXIFENE HCL [Concomitant]
  5. FOLIC ACID [Concomitant]

REACTIONS (5)
  - ERYTHEMA [None]
  - PNEUMONIA [None]
  - PRURITUS [None]
  - SWELLING [None]
  - URTICARIA [None]
